FAERS Safety Report 7959972-0 (Version None)
Quarter: 2011Q4

REPORT INFORMATION
  Report Type: 
  Country: None (occurrence: None)
  Receive Date: 20111206
  Receipt Date: 20111129
  Transmission Date: 20120403
  Serious: Yes (Other)
  Sender: FDA-Public Use
  Company Number: JP-PFIZER INC-2011282296

PATIENT
  Age: 48 Year
  Sex: Male
  Weight: 67 kg

DRUGS (2)
  1. MUCODYNE [Suspect]
     Indication: SINUSITIS
     Dosage: 500 MG, 3X/DAY
     Route: 048
     Dates: start: 20110917, end: 20111001
  2. ZITHROMAX [Suspect]
     Indication: CHRONIC SINUSITIS
     Dosage: 500 MG, 1X/DAY
     Route: 048
     Dates: start: 20110917, end: 20110918

REACTIONS (3)
  - BLOOD CREATINE PHOSPHOKINASE INCREASED [None]
  - MUSCULAR WEAKNESS [None]
  - DIARRHOEA [None]
